FAERS Safety Report 17937289 (Version 1)
Quarter: 2020Q2

REPORT INFORMATION
  Report Type: Spontaneous
  Country: DE (occurrence: DE)
  Receive Date: 20200624
  Receipt Date: 20200624
  Transmission Date: 20200714
  Serious: Yes (Other)
  Sender: FDA-Public Use
  Company Number: DE-UCBSA-2019048914

PATIENT
  Age: 52 Year
  Sex: Female

DRUGS (3)
  1. ROTIGOTINE [Suspect]
     Active Substance: ROTIGOTINE
     Indication: PARKINSON^S DISEASE
     Dosage: 8 MILLIGRAM, ONCE DAILY (QD)
     Route: 062
  2. PIRIBEDIL [Concomitant]
     Active Substance: PIRIBEDIL
     Indication: PRODUCT USED FOR UNKNOWN INDICATION
  3. ROTIGOTINE [Suspect]
     Active Substance: ROTIGOTINE
     Dosage: UNK, 2X/DAY (BID)

REACTIONS (6)
  - Parkinson^s disease [Not Recovered/Not Resolved]
  - Off label use [Unknown]
  - Depression [Unknown]
  - Skin reaction [Unknown]
  - Antinuclear antibody increased [Unknown]
  - Weight increased [Unknown]
